FAERS Safety Report 7722173-5 (Version None)
Quarter: 2011Q3

REPORT INFORMATION
  Report Type: 
  Country: None (occurrence: None)
  Receive Date: 20110825
  Receipt Date: 20110729
  Transmission Date: 20111222
  Serious: Yes (Other)
  Sender: FDA-Public Use
  Company Number: 981123

PATIENT
  Sex: Female

DRUGS (2)
  1. PACLITAXEL [Suspect]
     Indication: CHEMOTHERAPY
  2. CARBOPLATIN [Suspect]
     Indication: CHEMOTHERAPY

REACTIONS (6)
  - AGITATION [None]
  - INSOMNIA [None]
  - AFFECT LABILITY [None]
  - GRANDIOSITY [None]
  - DELUSION [None]
  - DELIRIUM [None]
